FAERS Safety Report 5012366-2 (Version None)
Quarter: 2006Q2

REPORT INFORMATION
  Report Type: 
  Country: None (occurrence: None)
  Receive Date: 20060525
  Receipt Date: 20060525
  Transmission Date: 20061013
  Serious: Yes (Hospitalization)
  Sender: FDA-Public Use
  Company Number: None

PATIENT
  Age: 78 Year
  Sex: Male

DRUGS (1)
  1. HEPARIN   50,000 UNITS/500 ML [Suspect]
     Indication: MYOCARDIAL INFARCTION
     Dosage: DRIP    CONTINUOUS   IV DRIP
     Route: 041

REACTIONS (5)
  - HEPARIN-INDUCED THROMBOCYTOPENIA [None]
  - HEPATIC FAILURE [None]
  - PEDAL PULSE ABSENT [None]
  - PERIPHERAL COLDNESS [None]
  - RENAL FAILURE [None]
